FAERS Safety Report 9156912 (Version 2)
Quarter: 2014Q2

REPORT INFORMATION
  Report Type: Report from Study
  Country: BD (occurrence: BD)
  Receive Date: 20130312
  Receipt Date: 20140607
  Transmission Date: 20141212
  Serious: Yes (Death, Other)
  Sender: FDA-Public Use
  Company Number: PHHY2013BD023363

PATIENT
  Age: 78 Year
  Sex: Female

DRUGS (1)
  1. EXELON PATCH [Suspect]
     Indication: DEMENTIA
     Dosage: 4.6 MG (5 CM), DAILY
     Route: 062
     Dates: start: 200909, end: 201003

REACTIONS (3)
  - Skin infection [Fatal]
  - Hip fracture [Unknown]
  - Fall [Unknown]
